FAERS Safety Report 4352694-7 (Version None)
Quarter: 2004Q2

REPORT INFORMATION
  Report Type: 
  Country: None (occurrence: None)
  Receive Date: 20040429
  Receipt Date: 20040419
  Transmission Date: 20050107
  Serious: Yes (Other)
  Sender: FDA-Public Use
  Company Number: 2004200014US

PATIENT
  Age: 73 Year
  Sex: Female
  Weight: 74.8 kg

DRUGS (3)
  1. CELEBREX [Suspect]
     Indication: ARTHRITIS
     Dosage: 1 DF, QD, ORAL
     Route: 048
     Dates: start: 20020101, end: 20020101
  2. MAXZIDE [Concomitant]
  3. SYNVISC [Concomitant]

REACTIONS (3)
  - FEELING ABNORMAL [None]
  - HYPERSENSITIVITY [None]
  - NAUSEA [None]
